FAERS Safety Report 18681918 (Version 1)
Quarter: 2020Q4

REPORT INFORMATION
  Report Type: Spontaneous
  Country: US (occurrence: US)
  Receive Date: 20201230
  Receipt Date: 20201230
  Transmission Date: 20210114
  Serious: No
  Sender: FDA-Public Use
  Company Number: US-IPSEN BIOPHARMACEUTICALS, INC.-2020-26001

PATIENT
  Age: 20 Year
  Sex: Male
  Weight: 120.66 kg

DRUGS (3)
  1. SOMATULINE DEPOT [Suspect]
     Active Substance: LANREOTIDE ACETATE
     Indication: OFF LABEL USE
  2. SOMATULINE DEPOT [Suspect]
     Active Substance: LANREOTIDE ACETATE
     Indication: HYPOTHALAMO-PITUITARY DISORDER
     Dosage: 120 MG FOR EVERY 4 WEEKS, 1 UNIT
     Route: 058
  3. SOMAVERT [Concomitant]
     Active Substance: PEGVISOMANT

REACTIONS (2)
  - Nail operation [Unknown]
  - Off label use [Unknown]
